APPROVED DRUG PRODUCT: EXONDYS 51
Active Ingredient: ETEPLIRSEN
Strength: 500MG/10ML (50MG/ML)
Dosage Form/Route: SOLUTION;INTRAVENOUS
Application: N206488 | Product #002
Applicant: SAREPTA THERAPEUTICS INC
Approved: Sep 19, 2016 | RLD: Yes | RS: Yes | Type: RX

PATENTS:
Patent 9506058 | Expires: Mar 14, 2034
Patent 9506058 | Expires: Mar 14, 2034
Patent 10364431 | Expires: Mar 14, 2034
Patent 10364431 | Expires: Mar 14, 2034
Patent 10337003 | Expires: Mar 14, 2034
Patent RE48468 | Expires: Oct 27, 2028
Patent RE47769 | Expires: Feb 2, 2029